FAERS Safety Report 13865234 (Version 1)
Quarter: 2017Q3

REPORT INFORMATION
  Report Type: Spontaneous
  Country: US (occurrence: US)
  Receive Date: 20170814
  Receipt Date: 20170814
  Transmission Date: 20171127
  Serious: No
  Sender: FDA-Public Use
  Company Number: US-FRESENIUS KABI-FK201706884

PATIENT
  Age: 55 Year
  Sex: Female
  Weight: 132 kg

DRUGS (3)
  1. DIPRIVAN [Suspect]
     Active Substance: PROPOFOL
     Indication: SEDATION
     Route: 040
     Dates: start: 20170808, end: 20170808
  2. DIPRIVAN [Suspect]
     Active Substance: PROPOFOL
     Route: 041
     Dates: start: 20170808, end: 20170808
  3. DIPRIVAN [Suspect]
     Active Substance: PROPOFOL
     Route: 041
     Dates: start: 20170808, end: 20170808

REACTIONS (2)
  - No adverse event [Recovered/Resolved]
  - Drug ineffective [Recovered/Resolved]

NARRATIVE: CASE EVENT DATE: 20170808
